FAERS Safety Report 9908567 (Version 1)
Quarter: 2014Q1

REPORT INFORMATION
  Report Type: Report from Study
  Country: US (occurrence: US)
  Receive Date: 20140219
  Receipt Date: 20140219
  Transmission Date: 20141002
  Serious: Yes (Other)
  Sender: FDA-Public Use
  Company Number: US-ROCHE-1350638

PATIENT
  Age: 83 Year
  Sex: Female

DRUGS (2)
  1. AVASTIN [Suspect]
     Indication: AGE-RELATED MACULAR DEGENERATION
     Route: 065
  2. AVASTIN [Suspect]
     Indication: DIABETIC RETINOPATHY

REACTIONS (12)
  - Diabetic retinal oedema [Recovered/Resolved]
  - Detachment of retinal pigment epithelium [Unknown]
  - Eye disorder [Unknown]
  - Macular scar [Unknown]
  - Retinal haemorrhage [Unknown]
  - Eye disorder [Unknown]
  - Vision blurred [Unknown]
  - Visual acuity reduced [Unknown]
  - Vitreous floaters [Unknown]
  - Detachment of retinal pigment epithelium [Unknown]
  - VIth nerve paralysis [Recovered/Resolved]
  - Off label use [Unknown]
